FAERS Safety Report 21541409 (Version 4)
Quarter: 2023Q4

REPORT INFORMATION
  Report Type: Report from Study
  Country: US (occurrence: US)
  Receive Date: 20221102
  Receipt Date: 20231009
  Transmission Date: 20240110
  Serious: Yes (Other)
  Sender: FDA-Public Use
  Company Number: US-ABBVIE-4149616

PATIENT
  Sex: Male

DRUGS (8)
  1. HUMIRA [Suspect]
     Active Substance: ADALIMUMAB
     Indication: Colitis ulcerative
     Dosage: FORM STRENGTH:40 MILLIGRAM ?CITRATE FREE
     Route: 058
     Dates: start: 20221129
  2. HUMIRA [Suspect]
     Active Substance: ADALIMUMAB
     Dosage: FORM STRENGTH:40 MILLIGRAM ?CITRATE FREE
     Route: 058
     Dates: start: 20211008
  3. HUMIRA [Suspect]
     Active Substance: ADALIMUMAB
     Dosage: FORM STRENGTH:40 MILLIGRAM ?CITRATE FREE
     Route: 058
     Dates: end: 20230905
  4. HUMIRA [Suspect]
     Active Substance: ADALIMUMAB
     Dosage: DOSE INCREASED?FORM STRENGTH:40 MILLIGRAM ?CITRATE FREE
     Route: 058
     Dates: start: 202209
  5. HUMIRA [Suspect]
     Active Substance: ADALIMUMAB
     Dosage: FORM STRENGTH:40 MILLIGRAM ?CITRATE FREE
     Route: 058
  6. AZATHIOPRINE [Concomitant]
     Active Substance: AZATHIOPRINE
     Indication: Product used for unknown indication
     Dosage: NOT DAILY
  7. PREDNISONE [Concomitant]
     Active Substance: PREDNISONE
     Indication: Product used for unknown indication
     Route: 065
     Dates: end: 202205
  8. TOZINAMERAN [Concomitant]
     Active Substance: TOZINAMERAN
     Indication: COVID-19 immunisation
     Dosage: COVID VACCINE ONE IN ONCE
     Route: 030

REACTIONS (4)
  - Knee arthroplasty [Recovering/Resolving]
  - Diarrhoea [Not Recovered/Not Resolved]
  - Arthritis [Not Recovered/Not Resolved]
  - Colitis ulcerative [Not Recovered/Not Resolved]
